FAERS Safety Report 17784382 (Version 1)
Quarter: 2020Q2

REPORT INFORMATION
  Report Type: Spontaneous
  Country: FR (occurrence: FR)
  Receive Date: 20200514
  Receipt Date: 20200514
  Transmission Date: 20200714
  Serious: Yes (Hospitalization)
  Sender: FDA-Public Use
  Company Number: NVSC2020FR130252

PATIENT
  Age: 49 Year
  Sex: Female
  Weight: 45 kg

DRUGS (5)
  1. ALPRAZOLAM. [Suspect]
     Active Substance: ALPRAZOLAM
     Indication: INTENTIONAL OVERDOSE
     Dosage: 3.75 G, ONCE/SINGLE
     Route: 048
     Dates: start: 20200203, end: 20200203
  2. LORAZEPAM. [Suspect]
     Active Substance: LORAZEPAM
     Dosage: 150 MG, ONCE/SINGLE
     Route: 048
     Dates: start: 20200203, end: 20200203
  3. ZOPICLONE [Suspect]
     Active Substance: ZOPICLONE
     Indication: INTENTIONAL OVERDOSE
     Dosage: 15 MG, ONCE/SINGLE
     Route: 048
     Dates: start: 20200203, end: 20200203
  4. SERTRALINE [Suspect]
     Active Substance: SERTRALINE HYDROCHLORIDE
     Indication: INTENTIONAL OVERDOSE
     Dosage: 1400 MG, ONCE/SINGLE
     Route: 048
     Dates: start: 20200203, end: 20200203
  5. LORAZEPAM. [Suspect]
     Active Substance: LORAZEPAM
     Indication: INTENTIONAL OVERDOSE
     Dosage: 30 MG, ONCE/SINGLE
     Route: 048
     Dates: start: 20200203, end: 20200203

REACTIONS (3)
  - Mydriasis [Recovered/Resolved]
  - Somnolence [Recovered/Resolved]
  - Poisoning deliberate [Recovered/Resolved]

NARRATIVE: CASE EVENT DATE: 20200203
